FAERS Safety Report 8906758 (Version 1)
Quarter: 2012Q4

REPORT INFORMATION
  Report Type: 
  Country: US (occurrence: US)
  Receive Date: 20121114
  Receipt Date: 20121114
  Transmission Date: 20130627
  Serious: No
  Sender: FDA-Public Use
  Company Number: US-PFIZER INC-2012284068

PATIENT
  Age: 47 Year
  Sex: Female
  Weight: 54.42 kg

DRUGS (11)
  1. NEURONTIN [Suspect]
     Indication: POLYNEUROPATHY
     Dosage: 300 mg, daily
     Dates: start: 20121012, end: 201210
  2. NEURONTIN [Interacting]
     Dosage: 100 mg, daily
     Dates: start: 201210, end: 201210
  3. NEURONTIN [Interacting]
     Dosage: 100 mg, daily
     Dates: start: 20121031
  4. ADVIL [Suspect]
     Indication: BURNING SENSATION
     Dosage: UNK
     Dates: start: 2012
  5. ZOLOFT [Interacting]
     Indication: ANXIETY
     Dosage: UNK
     Dates: start: 2012
  6. LIDODERM [Suspect]
     Indication: BURNING SENSATION
     Dosage: UNK
     Dates: start: 2012
  7. TRAZODONE [Interacting]
     Indication: SLEEP PROBLEM
     Dosage: 50 mg, daily
     Dates: start: 2012
  8. KLONOPIN [Interacting]
     Indication: NERVOUS
     Dosage: 0.5 mg, daily
     Dates: start: 2012
  9. FLEXERIL [Suspect]
     Indication: MUSCLE DISORDER
     Dosage: UNK
     Dates: start: 2012
  10. NORTRIPTYLINE [Suspect]
     Indication: POLYNEUROPATHY
     Dosage: 10 mg, daily
  11. NORTRIPTYLINE [Suspect]
     Dosage: UNK
     Dates: start: 20121013

REACTIONS (4)
  - Drug ineffective [Unknown]
  - Drug interaction [Unknown]
  - Burning sensation [Unknown]
  - Panic disorder [Unknown]
